FAERS Safety Report 12503217 (Version 1)
Quarter: 2016Q2

REPORT INFORMATION
  Report Type: Spontaneous
  Country: FR (occurrence: FR)
  Receive Date: 20160628
  Receipt Date: 20160628
  Transmission Date: 20160815
  Serious: Yes (Life-Threatening, Hospitalization)
  Sender: FDA-Public Use
  Company Number: FR-ACCORD-041882

PATIENT
  Age: 66 Year
  Sex: Female

DRUGS (2)
  1. FLUOROURACIL ACCORD [Suspect]
     Active Substance: FLUOROURACIL
     Indication: ADENOCARCINOMA OF COLON
     Dosage: STRENGTH : 50 MG/ML
     Route: 042
     Dates: start: 20160414, end: 20160416
  2. LEVOFOLINATE [Concomitant]
     Active Substance: LEVOLEUCOVORIN CALCIUM
     Indication: ADENOCARCINOMA OF COLON

REACTIONS (2)
  - Cardiogenic shock [Recovered/Resolved]
  - Metabolic acidosis [Unknown]

NARRATIVE: CASE EVENT DATE: 20160416
